FAERS Safety Report 9037015 (Version 1)
Quarter: 2012Q4

REPORT INFORMATION
  Report Type: Spontaneous
  Country: US (occurrence: None)
  Receive Date: 20121206
  Receipt Date: 20121206
  Transmission Date: 20130627
  Serious: Yes (Other)
  Sender: FDA-Public Use
  Company Number: 2012033769

PATIENT
  Age: 37 Year
  Sex: Female

DRUGS (1)
  1. RHOPHYLAC [Suspect]
     Indication: RHESUS PROPHYLAXIS
     Route: 030
     Dates: start: 20120827, end: 20120827

REACTIONS (3)
  - Choking [None]
  - Feeling abnormal [None]
  - Viral infection [None]
